FAERS Safety Report 23417018 (Version 3)
Quarter: 2024Q1

REPORT INFORMATION
  Report Type: Spontaneous
  Country: US (occurrence: US)
  Receive Date: 20240118
  Receipt Date: 20240130
  Transmission Date: 20240410
  Serious: Yes (Other)
  Sender: FDA-Public Use
  Company Number: US-SA-SAC20240116001351

PATIENT
  Age: 60 Year
  Sex: Male

DRUGS (4)
  1. ALPROLIX [Suspect]
     Active Substance: EFTRENONACOG ALFA
     Dosage: 5000 UNITS/9500 UNITS, Q6D
     Route: 042
  2. ALPROLIX [Suspect]
     Active Substance: EFTRENONACOG ALFA
     Dosage: 5000 UNITS/9500 UNITS, Q6D
     Route: 042
  3. ALPROLIX [Suspect]
     Active Substance: EFTRENONACOG ALFA
     Dosage: 5000 UNITS/9500 UNITS, PRN
     Route: 042
  4. ALPROLIX [Suspect]
     Active Substance: EFTRENONACOG ALFA
     Dosage: 5000 UNITS/9500 UNITS, PRN
     Route: 042

REACTIONS (3)
  - Renal haemorrhage [Unknown]
  - Influenza [Unknown]
  - Orthopnoea [Unknown]

NARRATIVE: CASE EVENT DATE: 20240110
